FAERS Safety Report 21958780 (Version 2)
Quarter: 2023Q1

REPORT INFORMATION
  Report Type: Spontaneous
  Country: US (occurrence: US)
  Receive Date: 20230206
  Receipt Date: 20230222
  Transmission Date: 20230418
  Serious: No
  Sender: FDA-Public Use
  Company Number: US-PFIZER INC-202300049256

PATIENT
  Age: 78 Year
  Sex: Female
  Weight: 71.21 kg

DRUGS (1)
  1. IBRANCE [Suspect]
     Active Substance: PALBOCICLIB
     Indication: Neoplasm malignant
     Dosage: 125 MG
     Dates: start: 202201

REACTIONS (1)
  - Fatigue [Recovered/Resolved]
